FAERS Safety Report 4283747-X (Version None)
Quarter: 2004Q1

REPORT INFORMATION
  Report Type: 
  Country: None (occurrence: None)
  Receive Date: 20040115
  Receipt Date: 20030211
  Transmission Date: 20041129
  Serious: Yes (Death)
  Sender: FDA-Public Use
  Company Number: NSADSS2003006597

PATIENT
  Age: 65 Year
  Sex: Female
  Weight: 71.2147 kg

DRUGS (4)
  1. DOXIL [Suspect]
     Indication: ENDOMETRIAL CANCER
     Dosage: 70 MG, 1 IN 4 WEEK, INTRAVENOUS DRIP
     Route: 041
     Dates: start: 20011228, end: 20020222
  2. PROCRIT (ERYTHROPOIETIN) [Concomitant]
  3. ZOFRAN [Concomitant]
  4. DECADRON [Concomitant]

REACTIONS (1)
  - CONDITION AGGRAVATED [None]
